FAERS Safety Report 6593004-4 (Version None)
Quarter: 2010Q1

REPORT INFORMATION
  Report Type: 
  Country: None (occurrence: None)
  Receive Date: 20100212
  Receipt Date: 20100128
  Transmission Date: 20100710
  Serious: Yes (Other)
  Sender: FDA-Public Use
  Company Number: FABR-1001176

PATIENT
  Age: 46 Year
  Sex: Male

DRUGS (13)
  1. FABRAZYME [Suspect]
     Indication: FABRY'S DISEASE
     Dosage: 36 MG, Q2W, INTRAVENOUS
     Route: 042
     Dates: start: 20080902
  2. CARBAMAZEPINE [Concomitant]
  3. ATENOLOL [Concomitant]
  4. INSULIN (INSULIN) [Concomitant]
  5. MOXONIDINE (MOXONIDINE) [Concomitant]
  6. ATORVASTATIN CALCIUM [Concomitant]
  7. EZETIMIBE [Concomitant]
  8. RAMIPRIL [Concomitant]
  9. OLMESARTAN (OLMESARTAN) [Concomitant]
  10. ALLOPURINOL [Concomitant]
  11. FUROSEMIDE [Concomitant]
  12. AMLODIPINE [Concomitant]
  13. OMEPRAZOLE [Concomitant]

REACTIONS (1)
  - BLADDER CANCER [None]
